FAERS Safety Report 6145271-9 (Version None)
Quarter: 2009Q2

REPORT INFORMATION
  Report Type: 
  Country: None (occurrence: None)
  Receive Date: 20090406
  Receipt Date: 20090406
  Transmission Date: 20091009
  Serious: Yes (Other)
  Sender: FDA-Public Use
  Company Number: PHHO2007IT18570

PATIENT
  Sex: Female
  Weight: 62 kg

DRUGS (3)
  1. CGS 20267 T30748+ [Suspect]
     Indication: BREAST CANCER
     Dosage: 2.5 MG, QD
     Route: 048
  2. CRESTOR [Concomitant]
  3. TAMOXIFEN CITRATE [Suspect]
     Dosage: 20 MG, QD
     Dates: start: 20031018

REACTIONS (3)
  - ACCIDENT [None]
  - INJURY [None]
  - PATELLA FRACTURE [None]
